FAERS Safety Report 5880325-3 (Version None)
Quarter: 2008Q3

REPORT INFORMATION
  Report Type: 
  Country: None (occurrence: None)
  Receive Date: 20080912
  Receipt Date: 20080903
  Transmission Date: 20090109
  Serious: Yes (Hospitalization)
  Sender: FDA-Public Use
  Company Number: US-B.I. PHARMACEUTICALS,INC./RIDGEFIELD-2008-BP-13708BP

PATIENT
  Age: 76 Year
  Sex: Female

DRUGS (10)
  1. MOBIC [Suspect]
     Indication: ARTHRITIS
     Dosage: 15MG
     Route: 048
     Dates: start: 20080401, end: 20080903
  2. LIPITOR [Concomitant]
     Indication: HYPERCHOLESTEROLAEMIA
  3. SINGULAIR [Concomitant]
     Indication: CHRONIC OBSTRUCTIVE PULMONARY DISEASE
  4. TOPROL-XL [Concomitant]
     Indication: HYPERTENSION
  5. TOPROL-XL [Concomitant]
     Indication: HEART RATE IRREGULAR
  6. PROTONIX [Concomitant]
     Indication: GASTROOESOPHAGEAL REFLUX DISEASE
  7. POTASSIUM CHLORIDE [Concomitant]
     Indication: SUPPLEMENTATION THERAPY
     Dosage: 198MG
     Route: 048
  8. VITAMIN B-12 [Concomitant]
     Indication: VITAMIN B12 DEFICIENCY
     Route: 030
  9. I DUR C [Concomitant]
     Indication: MINERAL SUPPLEMENTATION
  10. PROLOPRIM [Concomitant]
     Indication: PROPHYLAXIS URINARY TRACT INFECTION

REACTIONS (2)
  - ARTHRITIS [None]
  - HYPONATRAEMIA [None]
